FAERS Safety Report 20702092 (Version 2)
Quarter: 2022Q2

REPORT INFORMATION
  Report Type: Spontaneous
  Country: HR (occurrence: HR)
  Receive Date: 20220412
  Receipt Date: 20220413
  Transmission Date: 20220721
  Serious: Yes (Other)
  Sender: FDA-Public Use
  Company Number: HR-PFIZER INC-202200514901

PATIENT
  Age: 74 Year
  Sex: Male

DRUGS (3)
  1. ATORVASTATIN [Suspect]
     Active Substance: ATORVASTATIN
     Dosage: 20 MG
  2. XARELTO [Suspect]
     Active Substance: RIVAROXABAN
     Dosage: 20 MG
  3. RAMIPRIL [Suspect]
     Active Substance: RAMIPRIL
     Dosage: 5 MG

REACTIONS (8)
  - Faecaloma [Unknown]
  - Arrhythmia [Unknown]
  - Melaena [Unknown]
  - Asthenia [Unknown]
  - Activated partial thromboplastin time shortened [Unknown]
  - Haematocrit decreased [Unknown]
  - Haemoglobin decreased [Unknown]
  - Red blood cell count decreased [Unknown]
